FAERS Safety Report 23729852 (Version 1)
Quarter: 2024Q2

REPORT INFORMATION
  Report Type: Other
  Country: US (occurrence: US)
  Receive Date: 20240411
  Receipt Date: 20240411
  Transmission Date: 20240716
  Serious: No
  Sender: FDA-Public Use
  Company Number: US-APOTEX-2024AP004189

PATIENT
  Sex: Female

DRUGS (2)
  1. BRIMONIDINE TARTRATE/TIMOLOL MALEATE OPHTHALMIC SOLUTION [Suspect]
     Active Substance: BRIMONIDINE TARTRATE\TIMOLOL MALEATE
     Indication: Cataract operation
     Dosage: UNK
     Dates: start: 202302
  2. BRIMONIDINE TARTRATE/TIMOLOL MALEATE OPHTHALMIC SOLUTION [Suspect]
     Active Substance: BRIMONIDINE TARTRATE\TIMOLOL MALEATE
     Indication: Glaucoma surgery

REACTIONS (15)
  - Periorbital swelling [Recovering/Resolving]
  - Condition aggravated [Recovering/Resolving]
  - Suspected product contamination [Unknown]
  - Eyelid irritation [Recovering/Resolving]
  - Product contamination [Unknown]
  - Ocular hyperaemia [Recovering/Resolving]
  - Allergic reaction to excipient [Unknown]
  - Dry skin [Recovering/Resolving]
  - Eye pruritus [Recovering/Resolving]
  - Eye irritation [Recovering/Resolving]
  - Eye pain [Recovering/Resolving]
  - Erythema of eyelid [Recovering/Resolving]
  - Eye discharge [Recovering/Resolving]
  - Eyelid pain [Recovering/Resolving]
  - Erythema [Not Recovered/Not Resolved]

NARRATIVE: CASE EVENT DATE: 20230301
